FAERS Safety Report 20297827 (Version 1)
Quarter: 2022Q1

REPORT INFORMATION
  Report Type: Spontaneous
  Country: PL (occurrence: PL)
  Receive Date: 20220105
  Receipt Date: 20220105
  Transmission Date: 20220423
  Serious: Yes (Other)
  Sender: FDA-Public Use
  Company Number: PL-002147023-NVSC2021PL272006

PATIENT

DRUGS (2)
  1. ZOLADEX [Suspect]
     Active Substance: GOSERELIN ACETATE
     Indication: Hormone receptor positive breast cancer
     Dosage: UNK
     Route: 065
  2. TAMOXIFEN [Suspect]
     Active Substance: TAMOXIFEN
     Indication: Hormone receptor positive breast cancer
     Dosage: UNKNOWN
     Route: 048

REACTIONS (5)
  - Metastases to lymph nodes [Unknown]
  - Cellulite [Unknown]
  - Fluid retention [Unknown]
  - Swelling [Unknown]
  - Weight increased [Unknown]
